FAERS Safety Report 6157551-1 (Version None)
Quarter: 2009Q2

REPORT INFORMATION
  Report Type: 
  Country: None (occurrence: None)
  Receive Date: 20090416
  Receipt Date: 20090408
  Transmission Date: 20091009
  Serious: Yes (Hospitalization)
  Sender: FDA-Public Use
  Company Number: US-ABBOTT-09P-163-0567262-00

PATIENT
  Sex: Female
  Weight: 49.94 kg

DRUGS (6)
  1. HUMIRA [Suspect]
     Indication: CROHN'S DISEASE
     Dosage: LOADING DOSES OF 160 MG AND 80 MG
     Route: 058
     Dates: start: 20070401, end: 20070716
  2. HUMIRA [Suspect]
     Route: 058
     Dates: start: 20090121
  3. PENTASA [Concomitant]
     Indication: CROHN'S DISEASE
     Dosage: ONE-TWO TABLETS
     Route: 048
  4. CYMBALTA [Concomitant]
     Indication: DRUG USE FOR UNKNOWN INDICATION
     Route: 048
  5. ADDERALL 10 [Concomitant]
     Indication: ATTENTION DEFICIT/HYPERACTIVITY DISORDER
     Route: 048
  6. ALLEGRA D 24 HOUR [Concomitant]
     Indication: HYPERSENSITIVITY
     Dosage: UNKNOWN
     Route: 048

REACTIONS (11)
  - ABDOMINAL PAIN [None]
  - BACK PAIN [None]
  - BONE ABSCESS [None]
  - CHILLS [None]
  - CROHN'S DISEASE [None]
  - DIARRHOEA [None]
  - HYPOAESTHESIA [None]
  - ILEITIS [None]
  - PARAESTHESIA [None]
  - PYREXIA [None]
  - SPLENIC ABSCESS [None]
